FAERS Safety Report 5607687-6 (Version None)
Quarter: 2008Q1

REPORT INFORMATION
  Report Type: 
  Country: None (occurrence: None)
  Receive Date: 20080125
  Receipt Date: 20080115
  Transmission Date: 20080703
  Serious: Yes (Other)
  Sender: FDA-Public Use
  Company Number: GXKR2007AT02694

PATIENT
  Age: 63 Year
  Sex: Male

DRUGS (2)
  1. MIRTAZAPINE SANDOZ (NGX)(MIRTAZAPINE) UNKNOWN, 15MG [Suspect]
     Dosage: 15 MG, QD, ORAL
     Route: 048
     Dates: start: 20070101
  2. TAMSULOSIN HCL [Concomitant]

REACTIONS (1)
  - CHRONIC LYMPHOCYTIC LEUKAEMIA [None]
